FAERS Safety Report 8261381-4 (Version None)
Quarter: 2012Q2

REPORT INFORMATION
  Report Type: 
  Country: None (occurrence: None)
  Receive Date: 20120405
  Receipt Date: 20120328
  Transmission Date: 20120825
  Serious: Yes (Other)
  Sender: FDA-Public Use
  Company Number: BR-PFIZER INC-2012080670

PATIENT
  Age: 84 Year
  Sex: Female

DRUGS (7)
  1. XALATAN [Suspect]
     Indication: GLAUCOMA
     Dosage: 3 UG, ONE DROP IN EACH EYE
     Route: 047
  2. SOMALGIN [Concomitant]
     Dosage: UNK
     Dates: start: 20100101
  3. ISOSORBIDE MONONITRATE [Concomitant]
     Dosage: UNK
     Dates: start: 19950101
  4. ATENOLOL [Concomitant]
     Dosage: UNK
     Dates: start: 20100101
  5. VASTAREL [Concomitant]
     Dosage: UNK
     Dates: start: 20100101
  6. PLAVIX [Concomitant]
     Dosage: UNK
     Dates: start: 20090101
  7. SIMVASTATIN [Concomitant]
     Dosage: UNK
     Dates: start: 20060101

REACTIONS (1)
  - CARDIAC DISORDER [None]
